FAERS Safety Report 6273750-2 (Version None)
Quarter: 2009Q3

REPORT INFORMATION
  Report Type: 
  Country: None (occurrence: None)
  Receive Date: 20090720
  Receipt Date: 20090710
  Transmission Date: 20100115
  Serious: Yes (Hospitalization)
  Sender: FDA-Public Use
  Company Number: A0797176A

PATIENT
  Age: 67 Year
  Sex: Male

DRUGS (20)
  1. DIGOXIN [Suspect]
     Dosage: .125MG PER DAY
     Route: 048
  2. PACERONE [Suspect]
     Indication: ATRIAL FIBRILLATION
     Dosage: 200MG PER DAY
     Route: 048
     Dates: start: 20060601, end: 20090101
  3. COUMADIN [Concomitant]
  4. COREG [Concomitant]
  5. ALLOPURINOL [Concomitant]
  6. SPIRONOLACTONE [Concomitant]
  7. ASPIRIN [Concomitant]
  8. NEXIUM [Concomitant]
  9. IRON [Concomitant]
  10. COLCHICINE [Concomitant]
  11. GEMFIBROZIL [Concomitant]
  12. NITROGLYCERIN [Concomitant]
  13. CALCITRIOL [Concomitant]
  14. VITAMIN D [Concomitant]
  15. DIOVAN [Concomitant]
  16. CALCIUM [Concomitant]
  17. POTASSIUM CHLORIDE [Concomitant]
  18. MAGNESIUM SULFATE [Concomitant]
  19. FUROSEMIDE [Concomitant]
  20. SPIRIVA [Concomitant]

REACTIONS (8)
  - ARRHYTHMIA [None]
  - CARDIAC PACEMAKER INSERTION [None]
  - COUGH [None]
  - DYSGEUSIA [None]
  - DYSPNOEA [None]
  - IMPLANTABLE DEFIBRILLATOR INSERTION [None]
  - PULMONARY FIBROSIS [None]
  - WEIGHT DECREASED [None]
